FAERS Safety Report 15361988 (Version 1)
Quarter: 2018Q3

REPORT INFORMATION
  Report Type: Spontaneous
  Country: US (occurrence: US)
  Receive Date: 20180831
  Receipt Date: 20180831
  Transmission Date: 20181010
  Serious: No
  Sender: FDA-Public Use
  Company Number: None

PATIENT
  Age: 37 Year
  Sex: Male
  Weight: 88.45 kg

DRUGS (2)
  1. GAMUNEX [Suspect]
     Active Substance: HUMAN IMMUNOGLOBULIN G
     Indication: PEMPHIGUS
     Dosage: ?          OTHER FREQUENCY:Q 2WEEKS ;?
     Route: 042
  2. GAMUNEX [Suspect]
     Active Substance: HUMAN IMMUNOGLOBULIN G
     Dosage: ?          OTHER FREQUENCY:Q 2 WEEKS ;?
     Route: 042

REACTIONS (2)
  - Infusion related reaction [None]
  - Urticaria [None]

NARRATIVE: CASE EVENT DATE: 20180810
